FAERS Safety Report 18128914 (Version 2)
Quarter: 2020Q3

REPORT INFORMATION
  Report Type: Spontaneous
  Country: US (occurrence: US)
  Receive Date: 20200810
  Receipt Date: 20200817
  Transmission Date: 20201103
  Serious: No
  Sender: FDA-Public Use
  Company Number: US-PFIZER INC-2020179611

PATIENT
  Age: 58 Year
  Sex: Female
  Weight: 47.17 kg

DRUGS (1)
  1. PREMARIN [Suspect]
     Active Substance: ESTROGENS, CONJUGATED
     Indication: HORMONE REPLACEMENT THERAPY
     Dosage: 0.625 MG, 1X/DAY
     Route: 048
     Dates: end: 202004

REACTIONS (11)
  - Alopecia [Unknown]
  - Waist circumference increased [Unknown]
  - Menopausal symptoms [Unknown]
  - Pain [Unknown]
  - Feeling abnormal [Unknown]
  - Pain in extremity [Unknown]
  - Visual impairment [Unknown]
  - Heart rate decreased [Unknown]
  - Insomnia [Unknown]
  - Abdominal distension [Unknown]
  - Blood pressure increased [Unknown]

NARRATIVE: CASE EVENT DATE: 2020
